FAERS Safety Report 7149774-X (Version None)
Quarter: 2010Q4

REPORT INFORMATION
  Report Type: 
  Country: None (occurrence: None)
  Receive Date: 20101210
  Receipt Date: 20101202
  Transmission Date: 20110411
  Serious: No
  Sender: FDA-Public Use
  Company Number: US-BIOGENIDEC-2010BI022969

PATIENT
  Age: 32 Year
  Sex: Female

DRUGS (5)
  1. TYSABRI [Suspect]
     Indication: MULTIPLE SCLEROSIS
     Route: 042
     Dates: start: 20050105
  2. TYSABRI [Suspect]
     Route: 042
     Dates: start: 20070305, end: 20081026
  3. TYSABRI [Suspect]
     Route: 042
     Dates: start: 20090705
  4. AVONEX [Concomitant]
     Indication: MULTIPLE SCLEROSIS
     Route: 030
     Dates: start: 19990520
  5. AVONEX [Concomitant]
     Route: 030

REACTIONS (5)
  - DRUG INEFFECTIVE [None]
  - FALL [None]
  - FATIGUE [None]
  - JOINT INJURY [None]
  - NUCLEAR MAGNETIC RESONANCE IMAGING ABNORMAL [None]
